FAERS Safety Report 8101752-X (Version None)
Quarter: 2012Q1

REPORT INFORMATION
  Report Type: 
  Country: None (occurrence: None)
  Receive Date: 20120126
  Receipt Date: 20120117
  Transmission Date: 20120608
  Serious: Yes (Hospitalization, Other)
  Sender: FDA-Public Use
  Company Number: DKLU1075741

PATIENT
  Age: 8 Month
  Sex: Female
  Weight: 6.37 kg

DRUGS (7)
  1. SABRIL [Suspect]
     Indication: INFANTILE SPASMS
     Dosage: 250 MG MILLIGRAM(S), 2 IN 1 D, ORAL; 500 MG MILLIGRAM(S), 2 IN 1 D), ORAL;
     Dates: start: 20111101, end: 20111101
  2. SABRIL [Suspect]
     Indication: INFANTILE SPASMS
     Dosage: 250 MG MILLIGRAM(S), 2 IN 1 D, ORAL; 500 MG MILLIGRAM(S), 2 IN 1 D), ORAL;
  3. CLONAZEPAM [Concomitant]
  4. NYSTATIN [Concomitant]
  5. MULTIVITAMIN (VIGRAN) [Concomitant]
  6. OMEPRAZOLE [Concomitant]
  7. TOPIRAMATE [Concomitant]

REACTIONS (7)
  - SOMNOLENCE [None]
  - WEIGHT INCREASED [None]
  - SWELLING [None]
  - GASTROOESOPHAGEAL REFLUX DISEASE [None]
  - CONVULSION [None]
  - CRYING [None]
  - IRRITABILITY [None]
